FAERS Safety Report 16039035 (Version 2)
Quarter: 2019Q1

REPORT INFORMATION
  Report Type: Spontaneous
  Country: FR (occurrence: FR)
  Receive Date: 20190306
  Receipt Date: 20190325
  Transmission Date: 20190418
  Serious: Yes (Hospitalization, Other)
  Sender: FDA-Public Use
  Company Number: PHHY2019FR047075

PATIENT

DRUGS (12)
  1. DACARBAZINE. [Suspect]
     Active Substance: DACARBAZINE
     Indication: FOETAL EXPOSURE DURING PREGNANCY
     Dosage: 730 MG, UNK
     Route: 064
  2. DOXORUBICIN [Suspect]
     Active Substance: DOXORUBICIN
     Indication: FOETAL EXPOSURE DURING PREGNANCY
     Dosage: 48 UNK, UNK
     Route: 064
  3. VINBLASTINE [Suspect]
     Active Substance: VINBLASTINE
     Indication: HODGKIN^S DISEASE
  4. DOXORUBICIN [Suspect]
     Active Substance: DOXORUBICIN
     Indication: HODGKIN^S DISEASE
  5. BLEOMYCIN [Suspect]
     Active Substance: BLEOMYCIN SULFATE
     Indication: FOETAL EXPOSURE DURING PREGNANCY
     Dosage: 19.2 MG, UNK
     Route: 064
  6. DEXAMETHASONE. [Suspect]
     Active Substance: DEXAMETHASONE
     Indication: FOETAL EXPOSURE DURING PREGNANCY
     Dosage: 10 MG, UNK
     Route: 064
  7. ONDANSETRON [Suspect]
     Active Substance: ONDANSETRON
     Indication: FOETAL EXPOSURE DURING PREGNANCY
     Dosage: UNK
     Route: 064
  8. DACARBAZINE. [Suspect]
     Active Substance: DACARBAZINE
     Indication: HODGKIN^S DISEASE
  9. BLEOMYCIN [Suspect]
     Active Substance: BLEOMYCIN SULFATE
     Indication: HODGKIN^S DISEASE
  10. DEXAMETHASONE. [Suspect]
     Active Substance: DEXAMETHASONE
     Indication: PROPHYLAXIS OF NAUSEA AND VOMITING
  11. ONDANSETRON [Interacting]
     Active Substance: ONDANSETRON
     Indication: PROPHYLAXIS OF NAUSEA AND VOMITING
  12. VINBLASTINE [Suspect]
     Active Substance: VINBLASTINE
     Indication: FOETAL EXPOSURE DURING PREGNANCY
     Dosage: 10 MG, UNK
     Route: 064

REACTIONS (6)
  - Cardiac dysfunction [Recovered/Resolved]
  - Drug interaction [Recovered/Resolved]
  - Premature baby [Unknown]
  - Foetal exposure during pregnancy [Recovered/Resolved]
  - Cardiotoxicity [Recovered/Resolved]
  - Ejection fraction decreased [Recovered/Resolved]
